FAERS Safety Report 10024137 (Version 2)
Quarter: 2014Q1

REPORT INFORMATION
  Report Type: Spontaneous
  Country: US (occurrence: US)
  Receive Date: 20140320
  Receipt Date: 20140320
  Transmission Date: 20141002
  Serious: No
  Sender: FDA-Public Use
  Company Number: US-PFIZER INC-2013063605

PATIENT
  Age: 64 Year
  Sex: Male

DRUGS (2)
  1. INLYTA [Suspect]
     Indication: RENAL CANCER
     Dosage: 5 MG TWICE DAILY
     Dates: start: 20130122
  2. INLYTA [Suspect]
     Dosage: 1 MG, THREE TABS EVERY MORNING AND 4 TABS EVERY EVENING
     Route: 048
     Dates: end: 201403

REACTIONS (2)
  - Disease progression [Unknown]
  - Renal cancer [Unknown]
